FAERS Safety Report 18735194 (Version 5)
Quarter: 2021Q4

REPORT INFORMATION
  Report Type: Report from Study
  Country: None (occurrence: AU)
  Receive Date: 20210113
  Receipt Date: 20211009
  Transmission Date: 20220304
  Serious: Yes (Hospitalization)
  Sender: FDA-Public Use
  Company Number: AU-ABBVIE-21K-008-3728576-00

PATIENT
  Age: 35 Year
  Sex: Male

DRUGS (7)
  1. SKYRIZI [Suspect]
     Active Substance: RISANKIZUMAB-RZAA
     Indication: Psoriasis
     Route: 058
     Dates: start: 20201221, end: 20210119
  2. SKYRIZI [Suspect]
     Active Substance: RISANKIZUMAB-RZAA
     Route: 058
     Dates: start: 20210119
  3. CALCIPOTRIENE AND BETAMETHASONE DIPROPIONATE [Concomitant]
     Active Substance: BETAMETHASONE DIPROPIONATE\CALCIPOTRIENE
     Indication: Psoriasis
     Route: 061
     Dates: start: 201906
  4. INDOMETHACIN [Concomitant]
     Active Substance: INDOMETHACIN
     Indication: Gout
     Dosage: AS NEEDED
     Route: 048
     Dates: start: 201912
  5. AMOXICILLIN\CLAVULANATE POTASSIUM [Concomitant]
     Active Substance: AMOXICILLIN\CLAVULANATE POTASSIUM
     Indication: Epiglottitis
     Route: 048
     Dates: start: 20210105, end: 20210112
  6. OXYCODONE [Concomitant]
     Active Substance: OXYCODONE
     Indication: Ligament sprain
     Route: 048
     Dates: start: 20210319, end: 20210323
  7. ACETAMINOPHEN [Concomitant]
     Active Substance: ACETAMINOPHEN
     Indication: Ligament sprain
     Dosage: THREE TIMES PER DAY AS REQUIRED
     Route: 048
     Dates: start: 20210319, end: 20210410

REACTIONS (2)
  - Epiglottitis [Recovered/Resolved]
  - Ligament sprain [Recovered/Resolved]

NARRATIVE: CASE EVENT DATE: 20201231
